FAERS Safety Report 17285161 (Version 1)
Quarter: 2020Q1

REPORT INFORMATION
  Report Type: Spontaneous
  Country: US (occurrence: US)
  Receive Date: 20200117
  Receipt Date: 20200117
  Transmission Date: 20200409
  Serious: Yes (Other)
  Sender: FDA-Public Use
  Company Number: US-NEUROCRINE BIOSCIENCES INC.-2020NBI00085

PATIENT
  Age: 66 Year
  Sex: Female

DRUGS (2)
  1. INGREZZA [Suspect]
     Active Substance: VALBENAZINE
     Indication: TARDIVE DYSKINESIA
     Dates: end: 2019
  2. INGREZZA [Suspect]
     Active Substance: VALBENAZINE
     Indication: GAIT DISTURBANCE
     Dates: start: 2019

REACTIONS (2)
  - Surgery [Unknown]
  - Dyskinesia [Unknown]

NARRATIVE: CASE EVENT DATE: 2019
